FAERS Safety Report 11684983 (Version 2)
Quarter: 2015Q4

REPORT INFORMATION
  Report Type: Spontaneous
  Country: AU (occurrence: AU)
  Receive Date: 20151030
  Receipt Date: 20151105
  Transmission Date: 20160304
  Serious: Yes (Other)
  Sender: FDA-Public Use
  Company Number: AU-009507513-1510AUS014406

PATIENT
  Sex: Female
  Weight: 60 kg

DRUGS (1)
  1. MAXALT [Suspect]
     Active Substance: RIZATRIPTAN BENZOATE
     Dosage: 10 MG, ONCE
     Route: 048

REACTIONS (3)
  - Nausea [Unknown]
  - Vision blurred [Unknown]
  - Pollakiuria [Unknown]
